FAERS Safety Report 8302625-X (Version None)
Quarter: 2012Q2

REPORT INFORMATION
  Report Type: 
  Country: None (occurrence: None)
  Receive Date: 20120420
  Receipt Date: 20120418
  Transmission Date: 20120825
  Serious: No
  Sender: FDA-Public Use
  Company Number: US-B.I. PHARMACEUTICALS,INC./RIDGEFIELD-2012-BP-07369BP

PATIENT
  Age: 78 Year
  Sex: Female

DRUGS (4)
  1. MULTAQ [Concomitant]
  2. RAMIPRIL [Concomitant]
  3. PRADAXA [Suspect]
     Dosage: 300 MG
     Route: 048
     Dates: start: 20110101, end: 20120401
  4. WATER PILL [Concomitant]

REACTIONS (3)
  - ARTHRALGIA [None]
  - CONTUSION [None]
  - FALL [None]
